FAERS Safety Report 17549425 (Version 1)
Quarter: 2020Q1

REPORT INFORMATION
  Report Type: Spontaneous
  Country: None (occurrence: US)
  Receive Date: 20200317
  Receipt Date: 20200317
  Transmission Date: 20200409
  Serious: No
  Sender: FDA-Public Use
  Company Number: US-ORION CORPORATION ORION PHARMA-ENT 2019-0073

PATIENT
  Age: 58 Year
  Sex: Male

DRUGS (5)
  1. ROPINIROLE XL [Interacting]
     Active Substance: ROPINIROLE
     Indication: PARKINSON^S DISEASE
     Route: 065
  2. ENTACAPONE. [Suspect]
     Active Substance: ENTACAPONE
     Indication: PARKINSON^S DISEASE
     Route: 065
  3. DROXIDOPA [Interacting]
     Active Substance: DROXIDOPA
     Route: 065
  4. LEVODOPA-CARBIDOPA [Interacting]
     Active Substance: CARBIDOPA\LEVODOPA
     Indication: PARKINSON^S DISEASE
     Dosage: STRENGTH: 100/25 ?TWO TABLETS TIMES A DAY AND THREE TABLETS AT BEDTIME
     Route: 065
  5. DROXIDOPA [Interacting]
     Active Substance: DROXIDOPA
     Indication: ORTHOSTATIC HYPOTENSION
     Route: 065

REACTIONS (5)
  - Mania [Recovered/Resolved]
  - Confusional state [Recovered/Resolved]
  - Drug interaction [Recovered/Resolved]
  - Fear [Recovered/Resolved]
  - Agitation [Recovered/Resolved]
